FAERS Safety Report 18313445 (Version 1)
Quarter: 2020Q3

REPORT INFORMATION
  Report Type: Spontaneous
  Country: GB (occurrence: GB)
  Receive Date: 20200925
  Receipt Date: 20200925
  Transmission Date: 20201103
  Serious: Yes (Other)
  Sender: FDA-Public Use
  Company Number: GB-TEVA-2020-GB-1830416

PATIENT
  Age: 40 Year
  Sex: Female
  Weight: 85 kg

DRUGS (3)
  1. CARBAMAZEPINE. [Suspect]
     Active Substance: CARBAMAZEPINE
     Dosage: 1?2 TABLET TO BE TAKEN TWICE DAILY
     Dates: start: 20200720
  2. RIZATRIPTAN. [Concomitant]
     Active Substance: RIZATRIPTAN
     Indication: MIGRAINE
     Dosage: 1 TABLET AT ONSET OF MIGRAINE, REPEAT AFTER 2 H...
     Dates: start: 20180722
  3. GABAPENTIN. [Concomitant]
     Active Substance: GABAPENTIN
     Indication: PAIN
     Dosage: 6 DOSAGE FORMS
     Dates: start: 20200415, end: 20200720

REACTIONS (1)
  - Rash macular [Recovered/Resolved]

NARRATIVE: CASE EVENT DATE: 20200819
